FAERS Safety Report 4575594-6 (Version None)
Quarter: 2005Q1

REPORT INFORMATION
  Report Type: 
  Country: None (occurrence: None)
  Receive Date: 20050128
  Receipt Date: 20050128
  Transmission Date: 20050727
  Serious: Yes (Other)
  Sender: FDA-Public Use
  Company Number: None

PATIENT
  Age: 51 Year
  Sex: Male
  Weight: 76.6579 kg

DRUGS (1)
  1. GENTEAL SEVERE DRY EYE RELIEF GEL, 10 ML TABS [Suspect]
     Indication: DRY EYE
     Dosage: 2 DROPS PLACED IN LOWER EYELID
     Dates: start: 20050123

REACTIONS (6)
  - ABNORMAL SENSATION IN EYE [None]
  - EYE DISCHARGE [None]
  - EYE IRRITATION [None]
  - INSTILLATION SITE ABNORMAL SENSATION [None]
  - LACRIMATION INCREASED [None]
  - OCULAR HYPERAEMIA [None]
